FAERS Safety Report 4521728-9 (Version None)
Quarter: 2004Q4

REPORT INFORMATION
  Report Type: 
  Country: None (occurrence: None)
  Receive Date: 20041209
  Receipt Date: 20041129
  Transmission Date: 20050328
  Serious: Yes (Other)
  Sender: FDA-Public Use
  Company Number: PHFR2004GB04428

PATIENT
  Age: 61 Year
  Sex: Male
  Weight: 77 kg

DRUGS (2)
  1. VOLTAREN [Suspect]
     Dosage: 75 MG, TID
     Route: 048
     Dates: start: 20030201, end: 20040801
  2. PREDNISOLONE [Concomitant]
     Dosage: 10MG/DAY
     Route: 048
     Dates: start: 20030301

REACTIONS (7)
  - BALANCE DISORDER [None]
  - BLOOD ALKALINE PHOSPHATASE INCREASED [None]
  - DIARRHOEA [None]
  - DISTURBANCE IN ATTENTION [None]
  - HAEMOGLOBIN DECREASED [None]
  - LIVER DISORDER [None]
  - MALAISE [None]
